FAERS Safety Report 8011247-X (Version None)
Quarter: 2011Q4

REPORT INFORMATION
  Report Type: 
  Country: None (occurrence: None)
  Receive Date: 20111227
  Receipt Date: 20111227
  Transmission Date: 20120403
  Serious: Yes (Other)
  Sender: FDA-Public Use
  Company Number: None

PATIENT
  Sex: Male
  Weight: 86.182 kg

DRUGS (1)
  1. MEFLOQUINE HYDROCHLORIDE [Suspect]
     Indication: MALARIA PROPHYLAXIS
     Dosage: 1 X 250MG PILL
     Route: 048
     Dates: start: 19850415, end: 20070820

REACTIONS (7)
  - MENTAL DISORDER [None]
  - SLEEP DISORDER [None]
  - EMOTIONAL DISORDER [None]
  - DEPRESSION [None]
  - ANXIETY [None]
  - ABNORMAL BEHAVIOUR [None]
  - APNOEA [None]
